FAERS Safety Report 8157306-2 (Version None)
Quarter: 2012Q1

REPORT INFORMATION
  Report Type: 
  Country: None (occurrence: None)
  Receive Date: 20120103
  Receipt Date: 20110930
  Transmission Date: 20120608
  Serious: No
  Sender: FDA-Public Use
  Company Number: AE-2011-001930

PATIENT
  Age: 68 Year
  Sex: Male
  Weight: 86.1834 kg

DRUGS (7)
  1. PEGASYS [Concomitant]
  2. ALLOPURINOL [Concomitant]
  3. FOLIC ACID [Concomitant]
  4. INCIVEK [Suspect]
     Dosage: 2250 MG (750 MG,1 IN 8 HR) ,ORAL
     Route: 048
     Dates: start: 20110802
  5. RIBAVIRIN [Concomitant]
  6. DIOVAN [Concomitant]
  7. CELEBREX [Concomitant]

REACTIONS (1)
  - INCORRECT DOSE ADMINISTERED [None]
